FAERS Safety Report 18332727 (Version 1)
Quarter: 2020Q4

REPORT INFORMATION
  Report Type: Report from Study
  Country: None (occurrence: US)
  Receive Date: 20201001
  Receipt Date: 20201001
  Transmission Date: 20210113
  Serious: Yes (Other)
  Sender: FDA-Public Use
  Company Number: US-ABBVIE-20K-163-3451698-00

PATIENT
  Sex: Male

DRUGS (1)
  1. HUMIRA [Suspect]
     Active Substance: ADALIMUMAB
     Indication: COLITIS ULCERATIVE
     Route: 058
     Dates: start: 20190821

REACTIONS (6)
  - Headache [Recovered/Resolved]
  - Back disorder [Unknown]
  - Constipation [Unknown]
  - Insomnia [Unknown]
  - Injection site erythema [Unknown]
  - Back pain [Unknown]

NARRATIVE: CASE EVENT DATE: 2019
